FAERS Safety Report 8827909 (Version 3)
Quarter: 2013Q1

REPORT INFORMATION
  Report Type: Spontaneous
  Country: BR (occurrence: BR)
  Receive Date: 20121008
  Receipt Date: 20130103
  Transmission Date: 20140127
  Serious: Yes (Death, Hospitalization, Other)
  Sender: FDA-Public Use
  Company Number: BR-JNJFOC-20121000229

PATIENT
  Sex: Male
  Weight: 70 kg

DRUGS (3)
  1. ZYTIGA [Suspect]
     Indication: PRODUCT USED FOR UNKNOWN INDICATION
     Route: 048
     Dates: start: 20120829, end: 20120926
  2. ZYTIGA [Suspect]
     Indication: PRODUCT USED FOR UNKNOWN INDICATION
     Route: 048
     Dates: start: 201209, end: 20120926
  3. MAREVAN [Concomitant]
     Indication: THROMBOSIS
     Route: 065

REACTIONS (1)
  - Microangiopathic haemolytic anaemia [Fatal]
